FAERS Safety Report 11427773 (Version 1)
Quarter: 2015Q3

REPORT INFORMATION
  Report Type: Spontaneous
  Country: CA (occurrence: None)
  Receive Date: 20150826
  Receipt Date: 20150826
  Transmission Date: 20151125
  Serious: Yes (Other)
  Sender: FDA-Public Use
  Company Number: 2015MYN000048

PATIENT
  Age: 69 Year
  Sex: Female

DRUGS (37)
  1. AMITRIPTYLINE [Suspect]
     Active Substance: AMITRIPTYLINE
     Indication: DEPRESSION
  2. DICETEL [Suspect]
     Active Substance: PINAVERIUM BROMIDE
     Indication: IRRITABLE BOWEL SYNDROME
  3. LOPERAMIDE [Suspect]
     Active Substance: LOPERAMIDE
     Indication: IRRITABLE BOWEL SYNDROME
  4. TYLENOL WITH CODEINE [Suspect]
     Active Substance: ACETAMINOPHEN\CODEINE PHOSPHATE
     Indication: OESOPHAGEAL SPASM
  5. CLOPIDOGREL [Concomitant]
     Active Substance: CLOPIDOGREL BISULFATE
  6. TERBUTALINE (TERBUTALINE) [Concomitant]
  7. ACETAMINOPHEN AND CODEINE [Suspect]
     Active Substance: ACETAMINOPHEN\CODEINE PHOSPHATE
     Indication: HEADACHE
  8. APO-AMITRIPTYLINE [Suspect]
     Active Substance: AMITRIPTYLINE HYDROCHLORIDE
     Indication: DEPRESSION
  9. LACTULOSE. [Suspect]
     Active Substance: LACTULOSE
     Indication: IRRITABLE BOWEL SYNDROME
  10. PHENYTOIN. [Suspect]
     Active Substance: PHENYTOIN
     Indication: GENERALISED TONIC-CLONIC SEIZURE
  11. CODEINE [Concomitant]
     Active Substance: CODEINE
  12. LORATADINE (LORATADINE) [Concomitant]
  13. PHENYLEPHRINE HCL (PHENYLEPHRINE HYDROCHLORIDE) [Concomitant]
  14. BUDESONIDE W/FORMOTEROL (BUDESONIDE, FORMOTEROL) [Concomitant]
  15. VITAMIN D3 [Concomitant]
     Active Substance: CHOLECALCIFEROL
  16. CHLORDIAZEPOXIDE [Suspect]
     Active Substance: CHLORDIAZEPOXIDE
     Indication: IRRITABLE BOWEL SYNDROME
  17. LIBRAX [Suspect]
     Active Substance: CHLORDIAZEPOXIDE HYDROCHLORIDE\CLIDINIUM BROMIDE
     Indication: IRRITABLE BOWEL SYNDROME
  18. PLANTAGO AFRA [Suspect]
     Active Substance: HERBALS
     Indication: LAXATIVE SUPPORTIVE CARE
  19. PINAVERIUM BROMIDE (PINAVERIUM BROMIDE) [Concomitant]
  20. BUTALBITAL (BUTALBITAL) [Concomitant]
     Active Substance: BUTALBITAL
  21. CALCIUM CARBONATE (CALCIUM CARBONATE) [Concomitant]
  22. CHLORDIAZEPOXIDE HYDROCHLORIDE. [Suspect]
     Active Substance: CHLORDIAZEPOXIDE HYDROCHLORIDE
     Indication: IRRITABLE BOWEL SYNDROME
  23. DOMPERIDONE [Suspect]
     Active Substance: DOMPERIDONE
     Indication: IRRITABLE BOWEL SYNDROME
  24. PSYLLIUM HYDROPHILIC MUCILLOID [Suspect]
     Active Substance: PSYLLIUM HUSK
     Indication: IRRITABLE BOWEL SYNDROME
  25. LEVOTHYROXINE (LEVOTHYROXINE) [Concomitant]
     Active Substance: LEVOTHYROXINE
  26. PARACETAMOL (PARACETAMOL) [Concomitant]
     Active Substance: ACETAMINOPHEN
  27. PHENYLEPHRINE (PHENYLEPHRINE) [Concomitant]
  28. CALCIUM (CALCIUM) [Concomitant]
     Active Substance: CALCIUM
  29. RAMIPRIL (RAMIPRIL) [Concomitant]
     Active Substance: RAMIPRIL
  30. ERYTHROMYCIN (ERYTHROMYCIN) UNKNOWN [Suspect]
     Active Substance: ERYTHROMYCIN
     Indication: IRRITABLE BOWEL SYNDROME
  31. CLIDINIUM BROMIDE [Suspect]
     Active Substance: CLIDINIUM BROMIDE
     Indication: IRRITABLE BOWEL SYNDROME
  32. PLANTAGO AFRA [Suspect]
     Active Substance: HERBALS
     Indication: LAXATIVE SUPPORTIVE CARE
  33. SALBUTAMOL (SALBUTAMOL) [Concomitant]
     Active Substance: ALBUTEROL
  34. LACTULOSE. [Suspect]
     Active Substance: LACTULOSE
     Indication: IRRITABLE BOWEL SYNDROME
  35. LACTULOSE. [Suspect]
     Active Substance: LACTULOSE
     Indication: IRRITABLE BOWEL SYNDROME
  36. LANSOPRAZOLE (LANSOPRAZOLE) [Concomitant]
     Active Substance: LANSOPRAZOLE
  37. CAFFEINE (CAFFEINE) [Concomitant]
     Active Substance: CAFFEINE

REACTIONS (19)
  - Confusional state [None]
  - Diarrhoea [None]
  - Gastrointestinal motility disorder [None]
  - Off label use [None]
  - Dyspepsia [None]
  - Dementia [None]
  - Drug withdrawal syndrome [None]
  - Generalised tonic-clonic seizure [None]
  - Anticholinergic syndrome [None]
  - Incorrect dose administered [None]
  - Cognitive disorder [None]
  - Constipation [None]
  - Dizziness [None]
  - Fall [None]
  - Fatigue [None]
  - Gastrointestinal disorder [None]
  - Drug administration error [None]
  - Electrocardiogram QT prolonged [None]
  - Emotional disorder [None]
